FAERS Safety Report 6903819-8 (Version None)
Quarter: 2010Q3

REPORT INFORMATION
  Report Type: 
  Country: None (occurrence: None)
  Receive Date: 20100804
  Receipt Date: 20081213
  Transmission Date: 20110219
  Serious: No
  Sender: FDA-Public Use
  Company Number: US-PFIZER INC-2008017057

PATIENT
  Sex: Female
  Weight: 49.9 kg

DRUGS (1)
  1. LYRICA [Suspect]
     Indication: EYE PAIN
     Dosage: 75 MG, 2X/DAY

REACTIONS (9)
  - ANXIETY [None]
  - DISTURBANCE IN ATTENTION [None]
  - DIZZINESS [None]
  - DRUG INEFFECTIVE [None]
  - INCREASED APPETITE [None]
  - PARAESTHESIA [None]
  - POLLAKIURIA [None]
  - SOMNOLENCE [None]
  - WEIGHT INCREASED [None]
